FAERS Safety Report 7828295-2 (Version None)
Quarter: 2011Q4

REPORT INFORMATION
  Report Type: 
  Country: None (occurrence: None)
  Receive Date: 20111020
  Receipt Date: 20111011
  Transmission Date: 20120403
  Serious: No
  Sender: FDA-Public Use
  Company Number: US-PFIZER INC-2011248276

PATIENT
  Sex: Male

DRUGS (2)
  1. ACIPHEX [Concomitant]
  2. DIFLUCAN [Suspect]
     Indication: FUNGAL INFECTION
     Route: 048

REACTIONS (4)
  - MALABSORPTION [None]
  - DRY MOUTH [None]
  - DIARRHOEA [None]
  - ABDOMINAL PAIN [None]
